FAERS Safety Report 20588945 (Version 1)
Quarter: 2022Q1

REPORT INFORMATION
  Report Type: Spontaneous
  Country: US (occurrence: None)
  Receive Date: 20220311
  Receipt Date: 20220311
  Transmission Date: 20220423
  Serious: Yes (Hospitalization)
  Sender: FDA-Public Use
  Company Number: None

PATIENT
  Sex: Female

DRUGS (1)
  1. PERTZYE [Suspect]
     Active Substance: PANCRELIPASE AMYLASE\PANCRELIPASE LIPASE\PANCRELIPASE PROTEASE
     Dosage: OTHER QUANTITY : 24000-86250 UNIT;?FREQUENCY : 3 TIMES A DAY;?
     Route: 048

REACTIONS (2)
  - Product dispensing error [None]
  - Unevaluable event [None]
